FAERS Safety Report 17373444 (Version 2)
Quarter: 2020Q1

REPORT INFORMATION
  Report Type: Report from Study
  Country: CO (occurrence: CO)
  Receive Date: 20200205
  Receipt Date: 20200217
  Transmission Date: 20200409
  Serious: Yes (Hospitalization)
  Sender: FDA-Public Use
  Company Number: NVSC2020CO025351

PATIENT
  Sex: Female
  Weight: 55 kg

DRUGS (4)
  1. REVOLADE [Suspect]
     Active Substance: ELTROMBOPAG
     Dosage: 25 MG, QD
     Route: 065
     Dates: start: 201809
  2. REVOLADE [Suspect]
     Active Substance: ELTROMBOPAG
     Indication: THROMBOCYTOPENIA
     Dosage: UNK
     Route: 048
  3. LEVOTHYROXINE. [Concomitant]
     Active Substance: LEVOTHYROXINE
     Indication: THYROID DISORDER
     Route: 065
  4. PREDNISOLONE. [Concomitant]
     Active Substance: PREDNISOLONE
     Indication: THROMBOCYTOPENIC PURPURA
     Dosage: 5 MG, QD
     Route: 065

REACTIONS (3)
  - Petechiae [Recovered/Resolved]
  - Platelet count decreased [Unknown]
  - Gingival bleeding [Recovered/Resolved]
